FAERS Safety Report 23736522 (Version 2)
Quarter: 2024Q2

REPORT INFORMATION
  Report Type: Spontaneous
  Country: CO (occurrence: CO)
  Receive Date: 20240412
  Receipt Date: 20240415
  Transmission Date: 20240715
  Serious: No
  Sender: FDA-Public Use
  Company Number: CO-SA-SAC20240408001080

PATIENT
  Age: 75 Year
  Sex: Female

DRUGS (1)
  1. PRALUENT [Suspect]
     Active Substance: ALIROCUMAB
     Indication: Type IIa hyperlipidaemia
     Dosage: 150 MG, Q15D

REACTIONS (2)
  - Hand fracture [Recovering/Resolving]
  - Muscle strain [Recovering/Resolving]

NARRATIVE: CASE EVENT DATE: 20240315
